FAERS Safety Report 10046227 (Version 2)
Quarter: 2017Q1

REPORT INFORMATION
  Report Type: Spontaneous
  Country: US (occurrence: US)
  Receive Date: 20140331
  Receipt Date: 20170215
  Transmission Date: 20170428
  Serious: Yes (Congenital Anomaly, Other)
  Sender: FDA-Public Use
  Company Number: US-RANBAXY-2014US-79468

PATIENT

DRUGS (1)
  1. ISOTRETINOIN [Suspect]
     Active Substance: ISOTRETINOIN
     Indication: PRODUCT USED FOR UNKNOWN INDICATION
     Dosage: UNK
     Route: 064

REACTIONS (9)
  - Patent ductus arteriosus [Unknown]
  - Congenital nose malformation [Unknown]
  - Foetal exposure during pregnancy [Recovered/Resolved]
  - Ear malformation [Unknown]
  - Congenital choroid plexus cyst [Unknown]
  - Neonatal neuroblastoma [Recovered/Resolved]
  - Metastases to liver [Recovered/Resolved]
  - Facial paralysis [Unknown]
  - Congenital central hypoventilation syndrome [Unknown]
